FAERS Safety Report 6175421-X (Version None)
Quarter: 2009Q2

REPORT INFORMATION
  Report Type: 
  Country: None (occurrence: None)
  Receive Date: 20090429
  Receipt Date: 20090417
  Transmission Date: 20091009
  Serious: Yes (Other)
  Sender: FDA-Public Use
  Company Number: CERD-1000011

PATIENT
  Age: 28 Year
  Sex: Male
  Weight: 68 kg

DRUGS (1)
  1. CEREDASE [Suspect]
     Indication: GAUCHER'S DISEASE

REACTIONS (2)
  - ALCOHOLISM [None]
  - OSTEONECROSIS [None]
